FAERS Safety Report 14787927 (Version 1)
Quarter: 2018Q2

REPORT INFORMATION
  Report Type: Spontaneous
  Country: TW (occurrence: TW)
  Receive Date: 20180422
  Receipt Date: 20180422
  Transmission Date: 20180711
  Serious: Yes (Hospitalization, Other)
  Sender: FDA-Public Use
  Company Number: TW-009507513-1804TWN006736

PATIENT
  Age: 47 Year
  Sex: Female

DRUGS (13)
  1. KEYTRUDA [Suspect]
     Active Substance: PEMBROLIZUMAB
     Dosage: UNK
     Dates: start: 20171023
  2. T CELL RECEPTOR GENE THERAPY (UNSPECIFIED) [Concomitant]
     Dosage: UNK
     Dates: start: 20171228
  3. KEYTRUDA [Suspect]
     Active Substance: PEMBROLIZUMAB
     Dosage: UNK
     Dates: start: 20171127
  4. KEYTRUDA [Suspect]
     Active Substance: PEMBROLIZUMAB
     Indication: MALIGNANT NEOPLASM OF THYMUS
     Dosage: UNK
     Dates: start: 20170907
  5. T CELL RECEPTOR GENE THERAPY (UNSPECIFIED) [Concomitant]
     Dosage: UNK
     Dates: start: 20180105
  6. T CELL RECEPTOR GENE THERAPY (UNSPECIFIED) [Concomitant]
     Dosage: UNK
     Dates: start: 20171208
  7. KEYTRUDA [Suspect]
     Active Substance: PEMBROLIZUMAB
     Dosage: UNK
     Dates: start: 20171218
  8. T CELL RECEPTOR GENE THERAPY (UNSPECIFIED) [Concomitant]
     Dosage: UNK
     Dates: start: 20171130
  9. T CELL RECEPTOR GENE THERAPY (UNSPECIFIED) [Concomitant]
     Dosage: UNK
     Dates: start: 20171211
  10. T CELL RECEPTOR GENE THERAPY (UNSPECIFIED) [Concomitant]
     Dosage: UNK
     Dates: start: 20171222
  11. T CELL RECEPTOR GENE THERAPY (UNSPECIFIED) [Concomitant]
     Dosage: UNK
     Dates: start: 20180112
  12. KEYTRUDA [Suspect]
     Active Substance: PEMBROLIZUMAB
     Dosage: UNK
     Dates: start: 20171005
  13. TAXOL [Concomitant]
     Active Substance: PACLITAXEL
     Dosage: UNK
     Dates: start: 20170907

REACTIONS (10)
  - Respiratory failure [Unknown]
  - Altered state of consciousness [Unknown]
  - Mastoiditis [Unknown]
  - Obstructive airways disorder [Unknown]
  - Seizure [Unknown]
  - Central nervous system inflammation [Unknown]
  - Sinusitis [Unknown]
  - Off label use [Unknown]
  - Pneumonia [Unknown]
  - Central nervous system infection [Unknown]

NARRATIVE: CASE EVENT DATE: 20170907
